FAERS Safety Report 20815284 (Version 2)
Quarter: 2022Q2

REPORT INFORMATION
  Report Type: Spontaneous
  Country: US (occurrence: US)
  Receive Date: 20220511
  Receipt Date: 20220525
  Transmission Date: 20220720
  Serious: No
  Sender: FDA-Public Use
  Company Number: US-BIOMARINAP-US-2022-143012

PATIENT
  Age: 14 Year
  Sex: Female

DRUGS (7)
  1. PALYNZIQ [Suspect]
     Active Substance: PEGVALIASE-PQPZ
     Indication: Phenylketonuria
     Dosage: 10 MILLIGRAM, 4X/WEEK
     Route: 058
  2. PALYNZIQ [Suspect]
     Active Substance: PEGVALIASE-PQPZ
     Dosage: UNK
     Route: 058
     Dates: start: 20220408
  3. PALYNZIQ [Suspect]
     Active Substance: PEGVALIASE-PQPZ
     Dosage: 10 MILLIGRAM, QD
     Route: 058
  4. PREDNISONE [Concomitant]
     Active Substance: PREDNISONE
     Indication: Product used for unknown indication
     Dosage: 60 MILLIGRAM, 3 DAYS
     Dates: start: 20220427
  5. ALEVE [Concomitant]
     Active Substance: NAPROXEN SODIUM
     Indication: Product used for unknown indication
     Dosage: 220 MILLIGRAM
  6. FAMOTIDINE [Concomitant]
     Active Substance: FAMOTIDINE
     Indication: Product used for unknown indication
     Dosage: 40 MILLIGRAM, QD
     Dates: start: 20220307
  7. CETIRIZINE [Concomitant]
     Active Substance: CETIRIZINE HYDROCHLORIDE
     Indication: Product used for unknown indication
     Dosage: 10 MILLIGRAM, QD
     Dates: start: 20220307

REACTIONS (4)
  - Pyrexia [Recovered/Resolved]
  - Arthralgia [Recovered/Resolved]
  - Off label use [Unknown]
  - Off label use [Unknown]

NARRATIVE: CASE EVENT DATE: 20220424
